FAERS Safety Report 4707512-1 (Version None)
Quarter: 2005Q3

REPORT INFORMATION
  Report Type: 
  Country: None (occurrence: None)
  Receive Date: 20050701
  Receipt Date: 20050624
  Transmission Date: 20060218
  Serious: Yes (Life-Threatening, Hospitalization)
  Sender: FDA-Public Use
  Company Number: 2005-06-1628

PATIENT
  Age: 7 Month
  Sex: Male
  Weight: 11 kg

DRUGS (6)
  1. CELESTONE [Suspect]
     Indication: HYPERSENSITIVITY
     Dosage: SEE IMAGE, ORAL
     Route: 048
     Dates: start: 20050527, end: 20050527
  2. CELESTONE [Suspect]
     Indication: HYPERSENSITIVITY
     Dosage: SEE IMAGE, ORAL
     Route: 048
     Dates: start: 20050528, end: 20050528
  3. CELESTONE [Suspect]
     Indication: HYPERSENSITIVITY
     Dosage: SEE IMAGE, ORAL
     Route: 048
     Dates: start: 20050527, end: 20050530
  4. CELESTONE [Suspect]
     Indication: HYPERSENSITIVITY
     Dosage: SEE IMAGE, ORAL
     Route: 048
     Dates: start: 20050530, end: 20050530
  5. CEFPODOXIME PROXETIL [Concomitant]
  6. PRIMALAN [Concomitant]

REACTIONS (3)
  - IMPETIGO [None]
  - ORAL INTAKE REDUCED [None]
  - VARICELLA [None]
